FAERS Safety Report 5453110-4 (Version None)
Quarter: 2007Q3

REPORT INFORMATION
  Report Type: 
  Country: None (occurrence: None)
  Receive Date: 20070914
  Receipt Date: 20070904
  Transmission Date: 20080115
  Serious: Yes (Congenital Anomaly)
  Sender: FDA-Public Use
  Company Number: US-PFIZER INC-2007071179

PATIENT
  Sex: Male
  Weight: 3.91 kg

DRUGS (7)
  1. NELFINAVIR MESILATE [Suspect]
     Indication: HIV INFECTION
     Route: 065
  2. DIDANOSINE [Suspect]
  3. SUSTIVA [Suspect]
  4. 3TC [Suspect]
  5. RITONAVIR [Suspect]
  6. AZT [Suspect]
  7. INDINAVIR [Suspect]

REACTIONS (1)
  - HYPOSPADIAS [None]
